FAERS Safety Report 7075019-5 (Version None)
Quarter: 2010Q4

REPORT INFORMATION
  Report Type: 
  Country: None (occurrence: None)
  Receive Date: 20101029
  Receipt Date: 20100223
  Transmission Date: 20110411
  Serious: No
  Sender: FDA-Public Use
  Company Number: US-WYE-H13801110

PATIENT
  Age: 78 Year
  Sex: Female
  Weight: 81.72 kg

DRUGS (1)
  1. ADVIL PM [Suspect]
     Indication: INSOMNIA
     Dosage: ONE CAPSULE TAKEN ONE TIME
     Route: 048
     Dates: start: 20100222, end: 20100222

REACTIONS (2)
  - CHEST PAIN [None]
  - DRUG INEFFECTIVE [None]
